FAERS Safety Report 18572855 (Version 1)
Quarter: 2020Q4

REPORT INFORMATION
  Report Type: Spontaneous
  Country: US (occurrence: US)
  Receive Date: 20201202
  Receipt Date: 20201202
  Transmission Date: 20210114
  Serious: No
  Sender: FDA-Public Use
  Company Number: US-VISTAPHARM, INC.-VER202006-001148

PATIENT
  Sex: Male

DRUGS (1)
  1. METHADONE HYDROCHLORIDE ORAL CONCENTRATE, USP 10 MG/ML [Suspect]
     Active Substance: METHADONE HYDROCHLORIDE
     Indication: PRODUCT USED FOR UNKNOWN INDICATION
     Dosage: 1 LITRE

REACTIONS (14)
  - Drug ineffective [Unknown]
  - Feeling abnormal [Unknown]
  - Insomnia [Unknown]
  - Product quality issue [Unknown]
  - Somnolence [Unknown]
  - Bradykinesia [Unknown]
  - Therapeutic product effect decreased [Unknown]
  - Drug withdrawal syndrome [Unknown]
  - Abdominal pain upper [Unknown]
  - Discomfort [Unknown]
  - Crying [Unknown]
  - Headache [Unknown]
  - Myalgia [Unknown]
  - Product taste abnormal [Unknown]
